FAERS Safety Report 10213600 (Version 1)
Quarter: 2014Q2

REPORT INFORMATION
  Report Type: Spontaneous
  Country: US (occurrence: US)
  Receive Date: 20140603
  Receipt Date: 20140603
  Transmission Date: 20141212
  Serious: Yes (Hospitalization)
  Sender: FDA-Public Use
  Company Number: US-SA-2014SA069748

PATIENT
  Age: 44 Year
  Sex: Female

DRUGS (1)
  1. LANTUS SOLOSTAR [Suspect]
     Indication: PRODUCT USED FOR UNKNOWN INDICATION
     Dosage: DOSE:95 UNIT(S)
     Route: 058

REACTIONS (4)
  - Diabetic ketoacidosis [Unknown]
  - Unevaluable event [Unknown]
  - Blood glucose increased [Unknown]
  - Incorrect product storage [Unknown]
